FAERS Safety Report 6796379-6 (Version None)
Quarter: 2010Q2

REPORT INFORMATION
  Report Type: 
  Country: None (occurrence: None)
  Receive Date: 20100622
  Receipt Date: 20100608
  Transmission Date: 20101027
  Serious: Yes (Other)
  Sender: FDA-Public Use
  Company Number: DSM-2010-00860

PATIENT
  Age: 81 Year
  Sex: Male

DRUGS (1)
  1. SEVIKAR (OLMESARTAN MEDOXOMIL, AMLODIPINE BESILATE) (TABLET) (OLMESART [Suspect]
     Indication: ESSENTIAL HYPERTENSION
     Dosage: 20/5 MG (1 IN 1 D), ORAL
     Route: 048
     Dates: start: 20091218, end: 20100130

REACTIONS (1)
  - NAUSEA [None]
